FAERS Safety Report 6273480-7 (Version None)
Quarter: 2009Q3

REPORT INFORMATION
  Report Type: 
  Country: None (occurrence: None)
  Receive Date: 20090720
  Receipt Date: 20090715
  Transmission Date: 20100115
  Serious: Yes (Hospitalization)
  Sender: FDA-Public Use
  Company Number: FR-GILEAD-2008-0019481

PATIENT
  Sex: Male

DRUGS (30)
  1. TRUVADA [Suspect]
     Indication: HEPATITIS B VIRUS TEST
     Route: 048
     Dates: start: 20090601
  2. TRUVADA [Suspect]
     Route: 048
     Dates: start: 20081007, end: 20081118
  3. VIRAMUNE [Concomitant]
     Indication: HIV INFECTION
     Route: 046
     Dates: start: 20081007, end: 20081118
  4. KARDEGIC [Concomitant]
     Indication: HYPERTENSION
  5. KARDEGIC [Concomitant]
     Indication: ISCHAEMIC CARDIOMYOPATHY
  6. PLAVIX [Concomitant]
     Indication: HYPERTENSION
  7. PLAVIX [Concomitant]
     Indication: ISCHAEMIC CARDIOMYOPATHY
  8. KREDEX [Concomitant]
     Indication: HYPERTENSION
  9. KREDEX [Concomitant]
     Indication: ISCHAEMIC CARDIOMYOPATHY
  10. FLUDEX [Concomitant]
     Indication: HYPERTENSION
  11. FLUDEX [Concomitant]
     Indication: ISCHAEMIC CARDIOMYOPATHY
  12. NICARDIPINE HCL [Concomitant]
     Indication: HYPERTENSION
  13. NICARDIPINE HCL [Concomitant]
     Indication: ISCHAEMIC CARDIOMYOPATHY
  14. MEDIATENSYL [Concomitant]
     Indication: HYPERTENSION
  15. MEDIATENSYL [Concomitant]
     Indication: ISCHAEMIC CARDIOMYOPATHY
  16. TRIATEC [Concomitant]
     Indication: HYPERTENSION
     Dates: end: 20081120
  17. TRIATEC [Concomitant]
     Indication: ISCHAEMIC CARDIOMYOPATHY
  18. HYPERIUM [Concomitant]
     Indication: HYPERTENSION
  19. HYPERIUM [Concomitant]
     Indication: ISCHAEMIC CARDIOMYOPATHY
  20. TAMSULOSINE [Concomitant]
     Indication: BENIGN PROSTATIC HYPERPLASIA
  21. LYRICA [Concomitant]
     Indication: NEURALGIA
  22. MYSOLINE [Concomitant]
     Indication: NEURALGIA
  23. OMEPRAZOLE [Concomitant]
     Indication: GASTRITIS
  24. DIAMICRON [Concomitant]
     Indication: DIABETES MELLITUS
     Dates: end: 20081120
  25. DIAMICRON [Concomitant]
     Indication: HYPERCHOLESTEROLAEMIA
  26. EZETROL [Concomitant]
     Indication: DIABETES MELLITUS
  27. EZETROL [Concomitant]
     Indication: HYPERCHOLESTEROLAEMIA
  28. PREDNISOLONE [Concomitant]
     Dates: start: 20081010
  29. AERIUS [Concomitant]
     Dates: start: 20081008
  30. PYOSTACINE [Concomitant]
     Dates: start: 20081008

REACTIONS (3)
  - CYTOLYTIC HEPATITIS [None]
  - DRUG RASH WITH EOSINOPHILIA AND SYSTEMIC SYMPTOMS [None]
  - RENAL FAILURE [None]
